FAERS Safety Report 24979174 (Version 1)
Quarter: 2025Q1

REPORT INFORMATION
  Report Type: Report from Study
  Country: US (occurrence: US)
  Receive Date: 20250218
  Receipt Date: 20250218
  Transmission Date: 20250409
  Serious: Yes (Other)
  Sender: NOVARTIS
  Company Number: US-002147023-NVSC2024US215821

PATIENT
  Sex: Male

DRUGS (1)
  1. LEQVIO [Suspect]
     Active Substance: INCLISIRAN SODIUM
     Indication: Product used for unknown indication
     Route: 058
     Dates: start: 20240911

REACTIONS (15)
  - Mental impairment [Unknown]
  - Self-destructive behaviour [Unknown]
  - Myelopathy [Unknown]
  - Spinal cord disorder [Unknown]
  - Pneumonia [Unknown]
  - Fall [Unknown]
  - Balance disorder [Unknown]
  - Cough [Recovering/Resolving]
  - Nasopharyngitis [Unknown]
  - Sneezing [Unknown]
  - Pharyngeal oedema [Unknown]
  - Head injury [Unknown]
  - Wound [Unknown]
  - Contusion [Unknown]
  - Hypoacusis [Unknown]
